FAERS Safety Report 11403931 (Version 2)
Quarter: 2015Q3

REPORT INFORMATION
  Report Type: Report from Study
  Country: US (occurrence: US)
  Receive Date: 20150821
  Receipt Date: 20150827
  Transmission Date: 20151125
  Serious: Yes (Other)
  Sender: FDA-Public Use
  Company Number: US-AMGEN-USASP2015081187

PATIENT
  Age: 79 Year
  Sex: Female
  Weight: 54.42 kg

DRUGS (2)
  1. NPLATE [Suspect]
     Active Substance: ROMIPLOSTIM
     Indication: PRODUCT USED FOR UNKNOWN INDICATION
     Dosage: 3.5 UNK, QWK
     Route: 065
     Dates: start: 2011
  2. HARVONI [Suspect]
     Active Substance: LEDIPASVIR\SOFOSBUVIR
     Indication: HEPATITIS C
     Route: 065

REACTIONS (10)
  - Platelet count decreased [Unknown]
  - Hypoaesthesia [Unknown]
  - Asthenia [Unknown]
  - Liver injury [Unknown]
  - Pain in extremity [Unknown]
  - Hearing impaired [Unknown]
  - Fatigue [Unknown]
  - Hepatitis C [Recovering/Resolving]
  - Abdominal pain upper [Unknown]
  - Insomnia [Unknown]
